FAERS Safety Report 7505141-8 (Version None)
Quarter: 2011Q2

REPORT INFORMATION
  Report Type: 
  Country: None (occurrence: None)
  Receive Date: 20110526
  Receipt Date: 20110523
  Transmission Date: 20111010
  Serious: Yes (Death)
  Sender: FDA-Public Use
  Company Number: US-BRISTOL-MYERS SQUIBB COMPANY-15745409

PATIENT
  Age: 89 Year
  Sex: Male

DRUGS (7)
  1. COREG [Concomitant]
  2. ARICEPT [Concomitant]
  3. ALLOPURINOL [Concomitant]
  4. COUMADIN [Suspect]
     Indication: ATRIAL FIBRILLATION
     Dosage: DURATION OF THERAPY:ALMOST 9 YEARS
     Route: 048
     Dates: start: 20010101
  5. ZOLOFT [Concomitant]
  6. CALCIUM CARBONATE [Concomitant]
  7. CENTRUM SILVER [Concomitant]

REACTIONS (2)
  - FALL [None]
  - SUBDURAL HAEMATOMA [None]
